FAERS Safety Report 8169747-8 (Version None)
Quarter: 2012Q1

REPORT INFORMATION
  Report Type: 
  Country: None (occurrence: None)
  Receive Date: 20120222
  Receipt Date: 20120209
  Transmission Date: 20120608
  Serious: Yes (Hospitalization)
  Sender: FDA-Public Use
  Company Number: TCI2011A06874

PATIENT
  Age: 56 Year
  Sex: Female

DRUGS (4)
  1. NESINA [Concomitant]
  2. ACTOS [Suspect]
     Indication: TYPE 2 DIABETES MELLITUS
     Dosage: 15 MG (15 MG, 1 D) 1) PER ORAL
     Route: 048
     Dates: start: 20090519
  3. GLUFAST(MITIGLINIDE CALCIUM) [Suspect]
     Indication: TYPE 2 DIABETES MELLITUS
     Dosage: 30 MG (10 MG,3 IN 1 D) PER ORAL
     Route: 048
     Dates: start: 20100524
  4. AMARYL [Concomitant]

REACTIONS (6)
  - OROPHARYNGEAL PAIN [None]
  - PNEUMONIA [None]
  - NAUSEA [None]
  - HEADACHE [None]
  - BACK PAIN [None]
  - VOMITING [None]
